FAERS Safety Report 24265395 (Version 1)
Quarter: 2024Q3

REPORT INFORMATION
  Report Type: Spontaneous
  Country: US (occurrence: US)
  Receive Date: 20240829
  Receipt Date: 20240829
  Transmission Date: 20241016
  Serious: No
  Sender: BIOMARIN
  Company Number: US-SA-SAC20240816000721

PATIENT

DRUGS (1)
  1. LARONIDASE [Suspect]
     Active Substance: LARONIDASE
     Indication: Mucopolysaccharidosis I
     Dosage: 11.6 UNK, QW
     Route: 042
     Dates: start: 202108

REACTIONS (1)
  - Poor venous access [Recovering/Resolving]
